FAERS Safety Report 12416567 (Version 1)
Quarter: 2016Q2

REPORT INFORMATION
  Report Type: Spontaneous
  Country: FI (occurrence: FI)
  Receive Date: 20160530
  Receipt Date: 20160530
  Transmission Date: 20160815
  Serious: Yes (Other)
  Sender: FDA-Public Use
  Company Number: FI-JNJFOC-20131007645

PATIENT
  Age: 35 Year
  Sex: Female

DRUGS (3)
  1. TOPAMAX [Suspect]
     Active Substance: TOPIRAMATE
     Indication: EPILEPSY
     Dosage: 50 + 50 MG MOSTLY
     Route: 048
  2. TOPAMAX [Suspect]
     Active Substance: TOPIRAMATE
     Indication: EPILEPSY
     Dosage: 100 + 100 MG
     Route: 048
     Dates: end: 20130616
  3. TOPAMAX [Suspect]
     Active Substance: TOPIRAMATE
     Indication: EPILEPSY
     Dosage: 50 + 100 MG
     Route: 048

REACTIONS (8)
  - Blindness [Recovering/Resolving]
  - Mental impairment [Recovering/Resolving]
  - Irritability [Recovering/Resolving]
  - Arthropathy [Recovering/Resolving]
  - Hypokinesia [Recovering/Resolving]
  - Bone pain [Recovering/Resolving]
  - Learning disorder [Recovering/Resolving]
  - Pain [Recovering/Resolving]
